FAERS Safety Report 10514936 (Version 5)
Quarter: 2015Q4

REPORT INFORMATION
  Report Type: Report from Study
  Country: CA (occurrence: CA)
  Receive Date: 20141013
  Receipt Date: 20151027
  Transmission Date: 20160304
  Serious: Yes (Hospitalization, Other)
  Sender: FDA-Public Use
  Company Number: CA-ROCHE-1208578

PATIENT
  Age: 75 Year
  Sex: Female
  Weight: 70 kg

DRUGS (6)
  1. ACTEMRA [Suspect]
     Active Substance: TOCILIZUMAB
     Route: 042
     Dates: start: 20150928
  2. HYDROXYCHLOROQUINE [Concomitant]
     Active Substance: HYDROXYCHLOROQUINE
  3. ACTEMRA [Suspect]
     Active Substance: TOCILIZUMAB
     Route: 042
     Dates: start: 20150629
  4. VIMOVO [Concomitant]
     Active Substance: ESOMEPRAZOLE MAGNESIUM\NAPROXEN
  5. ACTEMRA [Suspect]
     Active Substance: TOCILIZUMAB
     Indication: RHEUMATOID ARTHRITIS
     Dosage: PREVIOUS TREATMENT WITH TOCILIZUMAB WAS ON 13/MAY/2015
     Route: 042
     Dates: start: 20130327
  6. ACTEMRA [Suspect]
     Active Substance: TOCILIZUMAB
     Route: 042
     Dates: start: 20151021

REACTIONS (9)
  - Pain [Unknown]
  - Sinusitis [Not Recovered/Not Resolved]
  - Seasonal allergy [Unknown]
  - Fatigue [Unknown]
  - Weight decreased [Not Recovered/Not Resolved]
  - Oesophagitis [Unknown]
  - Incorrect dose administered [Unknown]
  - Hiatus hernia [Unknown]
  - Heart rate increased [Unknown]

NARRATIVE: CASE EVENT DATE: 20130327
